FAERS Safety Report 11124143 (Version 1)
Quarter: 2015Q2

REPORT INFORMATION
  Report Type: Spontaneous
  Country: US (occurrence: None)
  Receive Date: 20150519
  Receipt Date: 20150519
  Transmission Date: 20150821
  Serious: Yes (Life-Threatening, Hospitalization, Other)
  Sender: FDA-Public Use
  Company Number: None

PATIENT
  Age: 88 Year
  Sex: Male
  Weight: 58.97 kg

DRUGS (4)
  1. SYMBICORT [Concomitant]
     Active Substance: BUDESONIDE\FORMOTEROL FUMARATE DIHYDRATE
  2. XARELTO [Suspect]
     Active Substance: RIVAROXABAN
     Indication: ATRIAL FIBRILLATION
     Dosage: STRENGTH: 15MG, QUANTITY: 1 TABLET, FREQUENCY: 1 TABLET @ DINNER, ROUTE: BY MOUTH
     Route: 048
     Dates: start: 20150406
  3. DILTIAZEM [Concomitant]
     Active Substance: DILTIAZEM
  4. TAMSULOSIN [Concomitant]
     Active Substance: TAMSULOSIN

REACTIONS (3)
  - Mouth haemorrhage [None]
  - Epistaxis [None]
  - Dyspnoea [None]

NARRATIVE: CASE EVENT DATE: 20150416
